FAERS Safety Report 4299112-5 (Version None)
Quarter: 2004Q1

REPORT INFORMATION
  Report Type: 
  Country: None (occurrence: None)
  Receive Date: 20040217
  Receipt Date: 20040206
  Transmission Date: 20041129
  Serious: Yes (Hospitalization)
  Sender: FDA-Public Use
  Company Number: 235043

PATIENT
  Age: 41 Year
  Sex: Male
  Weight: 73 kg

DRUGS (7)
  1. GLUCAGON [Suspect]
     Indication: DIABETES MELLITUS INSULIN-DEPENDENT
     Dosage: 1 MG, SUBCUTANEOUS
     Route: 058
     Dates: start: 20040114
  2. ACTRAPID (INSULIN HUMAN) SOLUTION FOR INJECTION [Concomitant]
  3. INSULATARD HM PENFILL (INSULIN HUMAN) SUSPENSION FOR INJECTION [Concomitant]
  4. PLAVIX [Concomitant]
  5. CARVEDILOL [Concomitant]
  6. ZOCOR [Concomitant]
  7. ZESTRIL [Concomitant]

REACTIONS (2)
  - INJURY ASPHYXIATION [None]
  - LOCALISED OEDEMA [None]
